FAERS Safety Report 7754530-5 (Version None)
Quarter: 2011Q3

REPORT INFORMATION
  Report Type: 
  Country: None (occurrence: None)
  Receive Date: 20110915
  Receipt Date: 20110601
  Transmission Date: 20111222
  Serious: Yes (Other)
  Sender: FDA-Public Use
  Company Number: TW-BAYER-2011-047671

PATIENT
  Age: 66 Year
  Sex: Male

DRUGS (1)
  1. IOPROMIDE 300 [Suspect]
     Indication: PRODUCT USED FOR UNKNOWN INDICATION
     Dosage: 100 ML, ONCE
     Dates: start: 20110527, end: 20110527

REACTIONS (3)
  - RASH [None]
  - CHOKING [None]
  - OROPHARYNGEAL DISCOMFORT [None]
